FAERS Safety Report 7433008-2 (Version None)
Quarter: 2011Q2

REPORT INFORMATION
  Report Type: 
  Country: None (occurrence: None)
  Receive Date: 20110422
  Receipt Date: 20110413
  Transmission Date: 20111010
  Serious: No
  Sender: FDA-Public Use
  Company Number: US-B.I. PHARMACEUTICALS,INC./RIDGEFIELD-2010-BP-15387BP

PATIENT
  Age: 74 Year
  Sex: Male

DRUGS (8)
  1. AMOXICILLIN [Concomitant]
     Indication: INFECTION
     Route: 048
     Dates: start: 20101215, end: 20101221
  2. ASPIRIN [Concomitant]
     Indication: CARDIAC DISORDER
     Route: 048
     Dates: start: 20040101
  3. TRAMADOL HCL [Concomitant]
     Indication: PAIN
     Route: 048
     Dates: start: 20101101
  4. LOPRESSOR [Concomitant]
  5. PRADAXA [Suspect]
     Indication: THERAPEUTIC PROCEDURE
  6. GLIPIZIDE [Concomitant]
  7. PRADAXA [Suspect]
     Indication: ATRIAL FIBRILLATION
     Dosage: 300 MG
     Route: 048
     Dates: start: 20101219
  8. ZOCOR [Concomitant]

REACTIONS (4)
  - HAEMATOCHEZIA [None]
  - PUNCTURE SITE HAEMORRHAGE [None]
  - RECTAL HAEMORRHAGE [None]
  - FAECAL VOLUME INCREASED [None]
